FAERS Safety Report 4458287-5 (Version None)
Quarter: 2004Q3

REPORT INFORMATION
  Report Type: 
  Country: None (occurrence: None)
  Receive Date: 20040917
  Receipt Date: 20040112
  Transmission Date: 20050211
  Serious: Yes (Hospitalization)
  Sender: FDA-Public Use
  Company Number: US-JNJFOC-20040102089

PATIENT
  Age: 44 Year
  Sex: Female
  Weight: 45.3597 kg

DRUGS (6)
  1. TOPAMAX [Suspect]
     Indication: CONVULSION
     Dosage: 400 MG, IN 1 DAY
     Dates: start: 20000101
  2. PAXIL (UNSPECIFIED) PAROXETINE HYDROCHLORIDE [Concomitant]
  3. LITHIUM (UNSPECIFIED) LITHIUM [Concomitant]
  4. LIPITOR [Concomitant]
  5. CLONAZEPAM [Concomitant]
  6. SYNTHROID [Concomitant]

REACTIONS (1)
  - PNEUMONIA [None]
